FAERS Safety Report 7204023-9 (Version None)
Quarter: 2010Q4

REPORT INFORMATION
  Report Type: 
  Country: None (occurrence: None)
  Receive Date: 20101230
  Receipt Date: 20101216
  Transmission Date: 20110411
  Serious: Yes (Other)
  Sender: FDA-Public Use
  Company Number: PHHY2010TR85923

PATIENT
  Age: 33 Year
  Sex: Female

DRUGS (2)
  1. FLUOXETINE [Suspect]
     Indication: DEPRESSION
     Dosage: 20 MG/DAY
  2. FLUOXETINE [Suspect]
     Dosage: 40 MG/DAY

REACTIONS (10)
  - BLOOD FOLLICLE STIMULATING HORMONE INCREASED [None]
  - BLOOD LUTEINISING HORMONE INCREASED [None]
  - BONE DENSITY ABNORMAL [None]
  - BONE FRAGMENTATION [None]
  - HUMERUS FRACTURE [None]
  - ORTHOPEDIC PROCEDURE [None]
  - OSTEOPENIA [None]
  - RADIUS FRACTURE [None]
  - SPINAL FRACTURE [None]
  - ULNA FRACTURE [None]
